FAERS Safety Report 6850028-7 (Version None)
Quarter: 2010Q3

REPORT INFORMATION
  Report Type: 
  Country: None (occurrence: None)
  Receive Date: 20100716
  Receipt Date: 20071011
  Transmission Date: 20110219
  Serious: Yes (Other)
  Sender: FDA-Public Use
  Company Number: US-PFIZER INC-2007085779

PATIENT
  Sex: Female
  Weight: 52.2 kg

DRUGS (6)
  1. CHANTIX [Suspect]
     Indication: SMOKING CESSATION THERAPY
     Dates: start: 20071001
  2. SYNTHROID [Concomitant]
  3. LEXAPRO [Concomitant]
  4. NORCO [Concomitant]
  5. SOMA [Concomitant]
  6. REGLAN [Concomitant]

REACTIONS (6)
  - ADVERSE DRUG REACTION [None]
  - MOTOR DYSFUNCTION [None]
  - MUSCLE TWITCHING [None]
  - NAUSEA [None]
  - SPEECH DISORDER [None]
  - SUICIDAL IDEATION [None]
